FAERS Safety Report 16648203 (Version 1)
Quarter: 2019Q3

REPORT INFORMATION
  Report Type: Spontaneous
  Country: US (occurrence: US)
  Receive Date: 20190730
  Receipt Date: 20190730
  Transmission Date: 20191004
  Serious: Yes (Other)
  Sender: FDA-Public Use
  Company Number: US-FRESENIUS KABI-FK201908456

PATIENT
  Age: 21 Year
  Sex: Male

DRUGS (2)
  1. CARBOPLATIN. [Suspect]
     Active Substance: CARBOPLATIN
     Indication: GERM CELL CANCER
     Dosage: 8 CYCLES
     Route: 013
  2. MELPHALAN (MANUFACTURER UNKNOWN) [Suspect]
     Active Substance: MELPHALAN
     Indication: GERM CELL CANCER
     Dosage: 8 CYCLES
     Route: 013

REACTIONS (3)
  - Product use issue [Unknown]
  - Thrombocytopenia [Unknown]
  - Anaemia [Unknown]
